FAERS Safety Report 5971728-7 (Version None)
Quarter: 2008Q4

REPORT INFORMATION
  Report Type: 
  Country: None (occurrence: None)
  Receive Date: 20081201
  Receipt Date: 20081126
  Transmission Date: 20090506
  Serious: Yes (Other)
  Sender: FDA-Public Use
  Company Number: IT-JNJFOC-20081106425

PATIENT
  Sex: Female

DRUGS (2)
  1. RISPERIDONE [Suspect]
  2. RISPERIDONE [Suspect]
     Indication: DELIRIUM

REACTIONS (1)
  - STEREOTYPY [None]
